FAERS Safety Report 7641442-0 (Version None)
Quarter: 2011Q3

REPORT INFORMATION
  Report Type: 
  Country: None (occurrence: None)
  Receive Date: 20110727
  Receipt Date: 20110727
  Transmission Date: 20111222
  Serious: No
  Sender: FDA-Public Use
  Company Number: None

PATIENT
  Age: 76 Year
  Sex: Female

DRUGS (10)
  1. KLOR-CON [Concomitant]
  2. DECADRON [Concomitant]
  3. CLONIDINE [Concomitant]
  4. TORSEMIDE [Concomitant]
  5. ALLOPURINOL [Concomitant]
  6. METOPROLOL TARTRATE [Concomitant]
  7. REVLIMID [Suspect]
     Indication: MYELOFIBROSIS
     Dosage: 5MG QOD ORALLY
     Route: 048
  8. COUMADIN [Concomitant]
  9. METOLAZONE [Concomitant]
  10. TEMAZEPAM [Concomitant]

REACTIONS (2)
  - DYSPHONIA [None]
  - FLUID RETENTION [None]
